FAERS Safety Report 5330296-3 (Version None)
Quarter: 2007Q2

REPORT INFORMATION
  Report Type: 
  Country: None (occurrence: None)
  Receive Date: 20070521
  Receipt Date: 20070517
  Transmission Date: 20071010
  Serious: Yes (Hospitalization)
  Sender: FDA-Public Use
  Company Number: HQWYE812811MAY04

PATIENT
  Sex: Male

DRUGS (3)
  1. RAPAMUNE [Suspect]
     Indication: PROPHYLAXIS AGAINST TRANSPLANT REJECTION
     Route: 048
     Dates: start: 20040404, end: 20040506
  2. PREDNISONE TAB [Concomitant]
     Route: 048
     Dates: start: 20040407
  3. CYCLOSPORINE [Suspect]
     Route: 048
     Dates: start: 20040406, end: 20040430

REACTIONS (1)
  - THROMBOTIC MICROANGIOPATHY [None]
